FAERS Safety Report 7065899-1 (Version None)
Quarter: 2010Q4

REPORT INFORMATION
  Report Type: 
  Country: None (occurrence: None)
  Receive Date: 20101027
  Receipt Date: 20101014
  Transmission Date: 20110411
  Serious: Yes (Other)
  Sender: FDA-Public Use
  Company Number: BE-GENENTECH-305720

PATIENT
  Sex: Female

DRUGS (3)
  1. MABTHERA [Suspect]
     Indication: RHEUMATOID ARTHRITIS
     Dosage: 1000 MG, UNK
     Route: 042
     Dates: start: 20080101
  2. MEDROL [Suspect]
     Indication: RHEUMATOID ARTHRITIS
     Dosage: UNK
     Route: 048
  3. IBRUPROFEN [Suspect]
     Indication: ANTIINFLAMMATORY THERAPY
     Dosage: UNK
     Route: 065

REACTIONS (2)
  - HEPATITIS B [None]
  - LIVER FUNCTION TEST ABNORMAL [None]
